FAERS Safety Report 21608537 (Version 2)
Quarter: 2022Q4

REPORT INFORMATION
  Report Type: Report from Study
  Country: US (occurrence: US)
  Receive Date: 20221117
  Receipt Date: 20221207
  Transmission Date: 20230113
  Serious: No
  Sender: FDA-Public Use
  Company Number: US-ABBVIE-4203060

PATIENT
  Sex: Male

DRUGS (2)
  1. VENCLEXTA [Suspect]
     Active Substance: VENETOCLAX
     Indication: Chronic lymphocytic leukaemia
     Route: 048
     Dates: start: 202210
  2. ONDANSETRON [Suspect]
     Active Substance: ONDANSETRON
     Indication: Nausea
     Route: 065

REACTIONS (6)
  - Disturbance in attention [Unknown]
  - Nausea [Unknown]
  - Fatigue [Unknown]
  - Amnesia [Unknown]
  - Weight decreased [Recovering/Resolving]
  - Appetite disorder [Recovering/Resolving]
